FAERS Safety Report 9012262 (Version 1)
Quarter: 2013Q1

REPORT INFORMATION
  Report Type: Spontaneous
  Country: CH (occurrence: None)
  Receive Date: 20121231
  Receipt Date: 20121231
  Transmission Date: 20140127
  Serious: Yes (Hospitalization, Other)
  Sender: FDA-Public Use
  Company Number: 2012P1067881

PATIENT
  Age: 34 Year
  Sex: Male

DRUGS (6)
  1. DARAPRIM [Suspect]
     Indication: CEREBRAL TOXOPLASMOSIS
     Route: 048
     Dates: start: 20120920
  2. SEROQUEL [Suspect]
     Indication: AFFECTIVE DISORDER
     Route: 048
     Dates: start: 20120925, end: 20121014
  3. SULFADIAZINE [Suspect]
     Indication: ENCEPHALITIS
     Route: 048
     Dates: start: 201209, end: 20121005
  4. NORVIR [Suspect]
     Indication: HIV INFECTION
     Dates: start: 20121002
  5. LEVETIRACETAM [Concomitant]
  6. CALCIUM FOLINATE [Concomitant]

REACTIONS (16)
  - Encephalitis [None]
  - Affective disorder [None]
  - HIV infection [None]
  - Pancytopenia [None]
  - Liver injury [None]
  - Drug level decreased [None]
  - Pyrexia [None]
  - Abdominal pain [None]
  - Vomiting [None]
  - Diarrhoea [None]
  - Oral candidiasis [None]
  - Lymphadenopathy [None]
  - Cytomegalovirus test positive [None]
  - Aspartate aminotransferase increased [None]
  - Alanine aminotransferase increased [None]
  - Drug interaction [None]
